FAERS Safety Report 19191028 (Version 1)
Quarter: 2021Q2

REPORT INFORMATION
  Report Type: Spontaneous
  Country: HR (occurrence: HR)
  Receive Date: 20210429
  Receipt Date: 20210429
  Transmission Date: 20210717
  Serious: Yes (Other)
  Sender: FDA-Public Use
  Company Number: ALC2021HR002947

PATIENT

DRUGS (1)
  1. ATROPINE SULFATE. [Suspect]
     Active Substance: ATROPINE SULFATE
     Indication: PRODUCT USED FOR UNKNOWN INDICATION
     Dosage: 5 DRP, QD (DROP1/12 MILLILITRE)
     Route: 045
     Dates: start: 20210306, end: 20210306

REACTIONS (7)
  - Psychomotor hyperactivity [Unknown]
  - Agitation [Unknown]
  - Dry mouth [Unknown]
  - Hallucination [Unknown]
  - Disorientation [Unknown]
  - Pruritus [Unknown]
  - Mydriasis [Unknown]

NARRATIVE: CASE EVENT DATE: 20210306
